FAERS Safety Report 8367611-2 (Version None)
Quarter: 2012Q1

REPORT INFORMATION
  Report Type: 
  Country: None (occurrence: None)
  Receive Date: 20120323
  Receipt Date: 20111114
  Transmission Date: 20120608
  Serious: Yes (Disabling)
  Sender: FDA-Public Use
  Company Number: 163-21880-11111962

PATIENT
  Age: 79 Year
  Sex: Male

DRUGS (1)
  1. REVLIMID [Suspect]
     Indication: MULTIPLE MYELOMA
     Dosage: 15 MG, DAILY ON DAYS 1-20 EVERY 28 DAYS, PO
     Route: 048
     Dates: start: 20111019

REACTIONS (6)
  - ASTHENIA [None]
  - PYREXIA [None]
  - CHILLS [None]
  - GAIT DISTURBANCE [None]
  - FATIGUE [None]
  - DECREASED APPETITE [None]
